FAERS Safety Report 8217482-X (Version None)
Quarter: 2012Q1

REPORT INFORMATION
  Report Type: 
  Country: None (occurrence: None)
  Receive Date: 20120301
  Receipt Date: 20111206
  Transmission Date: 20120608
  Serious: Yes (Hospitalization)
  Sender: FDA-Public Use
  Company Number: 311650USA

PATIENT
  Age: 86 Year
  Sex: Female
  Weight: 58.9676 kg

DRUGS (5)
  1. CLONIDINE [Suspect]
     Indication: HYPERTENSION
     Dosage: 0.2 MG
     Dates: start: 20111001
  2. AMLODIPINE [Suspect]
     Indication: HYPERTENSION
     Dates: start: 20111001
  3. FUROSEMIDE [Suspect]
     Indication: HYPERTENSION
     Dosage: ORAL
     Route: 048
     Dates: start: 20111001
  4. LISINOPRIL [Suspect]
     Indication: HYPERTENSION
     Dosage: ORAL
     Route: 048
     Dates: start: 20111001
  5. NIFEDIPINE [Suspect]
     Indication: HYPERTENSION
     Dosage: 30 MG (30 MG, 1 IN 1 D),ORAL
     Route: 048
     Dates: start: 20110906, end: 20111001

REACTIONS (2)
  - DRUG INEFFECTIVE [None]
  - BLOOD PRESSURE INCREASED [None]
